FAERS Safety Report 7483411-X (Version None)
Quarter: 2011Q2

REPORT INFORMATION
  Report Type: 
  Country: None (occurrence: None)
  Receive Date: 20110512
  Receipt Date: 20110512
  Transmission Date: 20111010
  Serious: Yes (Disabling)
  Sender: FDA-Public Use
  Company Number: None

PATIENT
  Age: 73 Year
  Sex: Female
  Weight: 68.0396 kg

DRUGS (4)
  1. ZOCOR [Concomitant]
  2. LIPITOR [Suspect]
     Indication: BLOOD CHOLESTEROL INCREASED
     Dosage: 10MG DAILY HS PO
     Route: 048
     Dates: start: 20060201
  3. FENOFIBRATE [Concomitant]
  4. CRESTOR [Concomitant]

REACTIONS (3)
  - MUSCULAR WEAKNESS [None]
  - GAIT DISTURBANCE [None]
  - FATIGUE [None]
